FAERS Safety Report 25418209 (Version 1)
Quarter: 2025Q2

REPORT INFORMATION
  Report Type: Spontaneous
  Country: US (occurrence: None)
  Receive Date: 20250609
  Receipt Date: 20250609
  Transmission Date: 20250717
  Serious: Yes (Other)
  Sender: FDA-CTU
  Company Number: None

PATIENT
  Age: 74 Year
  Sex: Female
  Weight: 97.2 kg

DRUGS (8)
  1. PREDNISOLONE ACETATE [Suspect]
     Active Substance: PREDNISOLONE ACETATE
     Indication: Eye inflammation
     Dosage: OTHER QUANTITY : 1 DROP(S);?FREQUENCY : 3 TIMES A DAY;?
     Route: 047
     Dates: start: 20250529, end: 20250608
  2. DILTIAZEM [Concomitant]
     Active Substance: DILTIAZEM
  3. POTASSIUM [Concomitant]
     Active Substance: POTASSIUM
  4. FUROSEMIDE [Concomitant]
     Active Substance: FUROSEMIDE
  5. MAGNESIUM CITRATE [Concomitant]
     Active Substance: MAGNESIUM CITRATE
  6. GELATIN [Concomitant]
     Active Substance: GELATIN
  7. SELENIUM [Concomitant]
     Active Substance: SELENIUM
  8. CALCIUM\CHOLECALCIFEROL [Concomitant]
     Active Substance: CALCIUM\CHOLECALCIFEROL

REACTIONS (4)
  - Arthralgia [None]
  - Back pain [None]
  - Gait disturbance [None]
  - Pain in extremity [None]

NARRATIVE: CASE EVENT DATE: 20250608
